FAERS Safety Report 17915279 (Version 1)
Quarter: 2020Q2

REPORT INFORMATION
  Report Type: Other
  Country: US (occurrence: US)
  Receive Date: 20200619
  Receipt Date: 20200619
  Transmission Date: 20200714
  Serious: Yes (Hospitalization)
  Sender: FDA-Public Use
  Company Number: US-INTERCEPT-PM2020001275

PATIENT
  Age: 73 Year
  Sex: Female

DRUGS (16)
  1. ANASTROZOLE. [Concomitant]
     Active Substance: ANASTROZOLE
  2. COLACE [Concomitant]
     Active Substance: DOCUSATE SODIUM
  3. IRBESARTAN. [Concomitant]
     Active Substance: IRBESARTAN
  4. GABAPENTIN. [Concomitant]
     Active Substance: GABAPENTIN
  5. PROLIA [Concomitant]
     Active Substance: DENOSUMAB
  6. VITAMIN D                          /00107901/ [Concomitant]
     Active Substance: ERGOCALCIFEROL
  7. AMLODIPINE [Concomitant]
     Active Substance: AMLODIPINE BESYLATE
  8. BIOTIN [Concomitant]
     Active Substance: BIOTIN
  9. URSODIOL. [Concomitant]
     Active Substance: URSODIOL
  10. PRILOSEC [Concomitant]
     Active Substance: OMEPRAZOLE MAGNESIUM
  11. TRAMADOL. [Concomitant]
     Active Substance: TRAMADOL
  12. FUROSEMIDE. [Concomitant]
     Active Substance: FUROSEMIDE
  13. LORAZEPAM. [Concomitant]
     Active Substance: LORAZEPAM
  14. OCALIVA [Suspect]
     Active Substance: OBETICHOLIC ACID
     Indication: PRIMARY BILIARY CHOLANGITIS
     Dosage: 5 MG, QD
     Route: 048
     Dates: start: 20191025
  15. CALTRATE WITH VITAMIN D [Concomitant]
     Active Substance: CALCIUM CARBONATE\CHOLECALCIFEROL
  16. VITAMINS WITH MINERALS [Concomitant]
     Active Substance: MINERALS\VITAMINS

REACTIONS (2)
  - Hospitalisation [Recovered/Resolved]
  - Therapy interrupted [Recovered/Resolved]

NARRATIVE: CASE EVENT DATE: 202005
